FAERS Safety Report 4946306-9 (Version None)
Quarter: 2006Q1

REPORT INFORMATION
  Report Type: 
  Country: None (occurrence: None)
  Receive Date: 20060317
  Receipt Date: 20051205
  Transmission Date: 20060701
  Serious: Yes (Other)
  Sender: FDA-Public Use
  Company Number: PHNR2005AU01689

PATIENT
  Sex: Male

DRUGS (1)
  1. CLOZARIL [Suspect]
     Dosage: UP TO 100 MG/DAY
     Route: 048
     Dates: start: 20051118, end: 20051201

REACTIONS (4)
  - BUNDLE BRANCH BLOCK [None]
  - ELECTROCARDIOGRAM ABNORMAL [None]
  - HEART RATE INCREASED [None]
  - TACHYCARDIA [None]
